FAERS Safety Report 25817683 (Version 2)
Quarter: 2025Q3

REPORT INFORMATION
  Report Type: Spontaneous
  Country: CA (occurrence: CA)
  Receive Date: 20250918
  Receipt Date: 20250925
  Transmission Date: 20251020
  Serious: Yes (Other)
  Sender: PFIZER
  Company Number: CA-PFIZER INC-202500064334

PATIENT
  Age: 26 Year
  Sex: Female

DRUGS (10)
  1. ABRILADA [Suspect]
     Active Substance: ADALIMUMAB-AFZB
     Indication: Uveitis
     Route: 058
     Dates: start: 20240911
  2. ABRILADA [Suspect]
     Active Substance: ADALIMUMAB-AFZB
     Route: 058
     Dates: start: 20250319
  3. ABRILADA [Suspect]
     Active Substance: ADALIMUMAB-AFZB
     Route: 058
     Dates: start: 20250410
  4. ABRILADA [Suspect]
     Active Substance: ADALIMUMAB-AFZB
     Route: 058
     Dates: start: 20250626
  5. ABRILADA [Suspect]
     Active Substance: ADALIMUMAB-AFZB
     Route: 058
     Dates: start: 20250725
  6. ABRILADA [Suspect]
     Active Substance: ADALIMUMAB-AFZB
     Route: 058
     Dates: start: 20250918
  7. DORZOLAMIDE [Concomitant]
     Active Substance: DORZOLAMIDE
  8. FOLIC ACID [Concomitant]
     Active Substance: FOLIC ACID
  9. METHOTREXATE [Concomitant]
     Active Substance: METHOTREXATE
  10. PREDNISOLONE [Concomitant]
     Active Substance: PREDNISOLONE

REACTIONS (6)
  - Dependence [Unknown]
  - Depression [Unknown]
  - Influenza [Recovering/Resolving]
  - Anxiety [Recovered/Resolved]
  - Panic reaction [Recovered/Resolved]
  - Inappropriate schedule of product administration [Unknown]

NARRATIVE: CASE EVENT DATE: 20250319
